FAERS Safety Report 13030008 (Version 1)
Quarter: 2016Q4

REPORT INFORMATION
  Report Type: Spontaneous
  Country: US (occurrence: US)
  Receive Date: 20161214
  Receipt Date: 20161214
  Transmission Date: 20170207
  Serious: Yes (Disabling)
  Sender: FDA-Public Use
  Company Number: None

PATIENT
  Age: 61 Year
  Sex: Female
  Weight: 58.5 kg

DRUGS (12)
  1. ACTHAR [Suspect]
     Active Substance: CORTICOTROPIN
     Indication: RHEUMATOID ARTHRITIS
     Dosage: OTHER ROUTE:INJECTION IN HIP AREA?
     Dates: start: 20160801, end: 20160826
  2. OTEZLA [Concomitant]
     Active Substance: APREMILAST
  3. PROTONIX [Concomitant]
     Active Substance: PANTOPRAZOLE SODIUM
  4. VITAMIN D [Concomitant]
     Active Substance: CHOLECALCIFEROL
  5. FOLIC ACID. [Concomitant]
     Active Substance: FOLIC ACID
  6. ACYCLOVIR. [Concomitant]
     Active Substance: ACYCLOVIR
  7. VICODIN ES [Concomitant]
     Active Substance: ACETAMINOPHEN\HYDROCODONE BITARTRATE
  8. NUVIGIL [Concomitant]
     Active Substance: ARMODAFINIL
  9. PREDNISONE. [Concomitant]
     Active Substance: PREDNISONE
  10. BUTRANS [Concomitant]
     Active Substance: BUPRENORPHINE
  11. ATELVIA [Concomitant]
     Active Substance: RISEDRONATE SODIUM
  12. TYLENOL [Concomitant]
     Active Substance: ACETAMINOPHEN

REACTIONS (7)
  - Nerve injury [None]
  - Gait disturbance [None]
  - Hypertension [None]
  - Peroneal nerve palsy [None]
  - Skin discolouration [None]
  - Hypoaesthesia [None]
  - Peripheral swelling [None]

NARRATIVE: CASE EVENT DATE: 20160826
